FAERS Safety Report 22830719 (Version 3)
Quarter: 2023Q4

REPORT INFORMATION
  Report Type: Report from Study
  Country: CA (occurrence: CA)
  Receive Date: 20230817
  Receipt Date: 20231102
  Transmission Date: 20240109
  Serious: Yes (Other)
  Sender: FDA-Public Use
  Company Number: CA-JNJFOC-20230533794

PATIENT
  Age: 74 Year
  Sex: Female

DRUGS (3)
  1. REMICADE [Suspect]
     Active Substance: INFLIXIMAB
     Indication: Colitis ulcerative
     Route: 042
     Dates: start: 20200831
  2. REMICADE [Suspect]
     Active Substance: INFLIXIMAB
     Dosage: DOSE CHANGE?PATIENT RECEIVED HER 2ND DOSE AT 10MG/KG ON 12-JUL-2023.
     Route: 042
     Dates: start: 2023
  3. REMICADE [Suspect]
     Active Substance: INFLIXIMAB
     Route: 042
     Dates: start: 2023

REACTIONS (12)
  - Muscle spasms [Recovered/Resolved]
  - Agitation [Recovered/Resolved]
  - Pruritus [Recovered/Resolved]
  - Infusion related reaction [Unknown]
  - Colitis ulcerative [Not Recovered/Not Resolved]
  - Nausea [Unknown]
  - Respiratory tract infection [Unknown]
  - Defaecation urgency [Not Recovered/Not Resolved]
  - Weight decreased [Unknown]
  - Middle insomnia [Unknown]
  - Drug specific antibody present [Unknown]
  - Off label use [Unknown]

NARRATIVE: CASE EVENT DATE: 20230101
